FAERS Safety Report 10023939 (Version 1)
Quarter: 2014Q1

REPORT INFORMATION
  Report Type: Spontaneous
  Country: US (occurrence: None)
  Receive Date: 20140304
  Receipt Date: 20140304
  Transmission Date: 20141002
  Serious: Yes (Hospitalization, Other)
  Sender: FDA-Public Use
  Company Number: RB-60505-2013

PATIENT
  Age: 51 Year
  Sex: Female

DRUGS (4)
  1. SUBOXONE 8 MG [Suspect]
     Indication: DRUG DEPENDENCE
     Route: 060
     Dates: start: 2010, end: 2010
  2. OMEPRAZOLE [Concomitant]
  3. WELLBUTRIN [Concomitant]
  4. METHENAMINE [Concomitant]

REACTIONS (1)
  - Hypersensitivity [None]
